FAERS Safety Report 10271438 (Version 4)
Quarter: 2015Q2

REPORT INFORMATION
  Report Type: Spontaneous
  Country: US (occurrence: US)
  Receive Date: 20140701
  Receipt Date: 20150623
  Transmission Date: 20150821
  Serious: Yes (Life-Threatening, Hospitalization, Other)
  Sender: FDA-Public Use
  Company Number: US-CELGENEUS-163-20785-14024682

PATIENT
  Age: 82 Year
  Sex: Male
  Weight: 76 kg

DRUGS (10)
  1. GLUCOSAMINE SULFATE [Concomitant]
     Active Substance: GLUCOSAMINE SULFATE
     Indication: PRODUCT USED FOR UNKNOWN INDICATION
     Route: 048
  2. ASPIRIN. [Concomitant]
     Active Substance: ASPIRIN
     Indication: PRODUCT USED FOR UNKNOWN INDICATION
     Route: 048
  3. REVLIMID [Concomitant]
     Active Substance: LENALIDOMIDE
     Indication: TUMOUR LYSIS SYNDROME
     Route: 048
  4. THALOMID [Suspect]
     Active Substance: THALIDOMIDE
     Indication: LYMPHOMA
     Dosage: 200 MILLIGRAM
     Route: 048
     Dates: start: 20140218, end: 20140304
  5. HYDROCODONE/ACETAMINOPHEN [Concomitant]
     Active Substance: ACETAMINOPHEN\HYDROCODONE
     Indication: PAIN
     Dosage: 5-325MG
     Route: 048
     Dates: start: 20140225
  6. FLUID [Concomitant]
     Active Substance: UNSPECIFIED INGREDIENT
     Indication: TUMOUR LYSIS SYNDROME
     Route: 065
  7. RITUXAN [Concomitant]
     Active Substance: RITUXIMAB
     Indication: PRODUCT USED FOR UNKNOWN INDICATION
     Route: 065
     Dates: end: 201209
  8. ACETAMINOPHEN. [Concomitant]
     Active Substance: ACETAMINOPHEN
     Indication: PRODUCT USED FOR UNKNOWN INDICATION
     Route: 048
  9. TRAVOPROST [Concomitant]
     Active Substance: TRAVOPROST
     Indication: PRODUCT USED FOR UNKNOWN INDICATION
     Route: 048
  10. ALLOPURINOL. [Concomitant]
     Active Substance: ALLOPURINOL
     Indication: TUMOUR LYSIS SYNDROME
     Route: 065

REACTIONS (6)
  - Tumour lysis syndrome [Recovered/Resolved]
  - Cytopenia [Not Recovered/Not Resolved]
  - Cholecystitis chronic [Recovered/Resolved]
  - Neuropathy peripheral [Not Recovered/Not Resolved]
  - Sepsis [Recovered/Resolved]
  - Deep vein thrombosis [Recovered/Resolved]

NARRATIVE: CASE EVENT DATE: 20140225
